FAERS Safety Report 23654635 (Version 2)
Quarter: 2024Q2

REPORT INFORMATION
  Report Type: Spontaneous
  Country: FR (occurrence: FR)
  Receive Date: 20240320
  Receipt Date: 20240514
  Transmission Date: 20240716
  Serious: Yes (Other)
  Sender: FDA-Public Use
  Company Number: FR-LUNDBECK-DKLU3075510

PATIENT
  Sex: Female
  Weight: 5.56 kg

DRUGS (2)
  1. BRINTELLIX [Suspect]
     Active Substance: VORTIOXETINE HYDROBROMIDE
     Indication: Mixed anxiety and depressive disorder
     Dosage: 10 MILLIGRAM, QD
     Route: 064
     Dates: start: 202206
  2. XANAX [Concomitant]
     Active Substance: ALPRAZOLAM
     Indication: Product used for unknown indication
     Dosage: UNK, QD
     Route: 064

REACTIONS (2)
  - Cephalhaematoma [Unknown]
  - Foetal exposure during pregnancy [Unknown]
